FAERS Safety Report 12644054 (Version 8)
Quarter: 2019Q1

REPORT INFORMATION
  Report Type: Spontaneous
  Country: FR (occurrence: FR)
  Receive Date: 20160811
  Receipt Date: 20190226
  Transmission Date: 20190417
  Serious: Yes (Hospitalization, Other)
  Sender: FDA-Public Use
  Company Number: FR-PFIZER INC-2016378768

PATIENT
  Age: 48 Year
  Sex: Female
  Weight: 72 kg

DRUGS (13)
  1. LERCAN [Suspect]
     Active Substance: LERCANIDIPINE
     Dosage: 10 MG, 1X/DAY
  2. HYDROCORTISONE. [Suspect]
     Active Substance: HYDROCORTISONE
     Dosage: 20 MG, 1X/DAY
  3. PARACETAMOL [Suspect]
     Active Substance: ACETAMINOPHEN
     Dosage: UNK
  4. KETAMINE [Suspect]
     Active Substance: KETAMINE
     Dosage: 70 MG, MONTHLY
     Route: 041
     Dates: start: 201502
  5. SKENAN [Suspect]
     Active Substance: MORPHINE SULFATE
     Dosage: 40 MG, 2X/DAY
     Route: 048
  6. SKENAN [Suspect]
     Active Substance: MORPHINE SULFATE
     Dosage: 40 MG, DAILY
     Route: 048
  7. INEXIUM [ESOMEPRAZOLE MAGNESIUM] [Suspect]
     Active Substance: ESOMEPRAZOLE MAGNESIUM
     Dosage: UNK
     Route: 048
  8. LYRICA [Suspect]
     Active Substance: PREGABALIN
     Dosage: 20 MG, 1X/DAY
     Route: 048
     Dates: start: 201209, end: 20150101
  9. KETAMINE [Suspect]
     Active Substance: KETAMINE
     Dosage: 50 MG, MONTHLY
     Route: 041
     Dates: start: 201411
  10. KETAMINE [Suspect]
     Active Substance: KETAMINE
     Dosage: 70 MG, MONTHLY (1 MG/KG)
     Route: 041
     Dates: start: 201501
  11. KETAMINE [Suspect]
     Active Substance: KETAMINE
     Dosage: 50 MG, MONTHLY
     Route: 041
     Dates: start: 201407
  12. KETAMINE [Suspect]
     Active Substance: KETAMINE
     Dosage: 50 MG, MONTHLY
     Route: 041
     Dates: start: 201410
  13. SKENAN [Suspect]
     Active Substance: MORPHINE SULFATE
     Dosage: 80 MG, 1X/DAY
     Route: 048

REACTIONS (1)
  - Hepatocellular injury [Recovered/Resolved]

NARRATIVE: CASE EVENT DATE: 20150323
